FAERS Safety Report 18222057 (Version 1)
Quarter: 2020Q3

REPORT INFORMATION
  Report Type: Spontaneous
  Country: US (occurrence: US)
  Receive Date: 20200902
  Receipt Date: 20200902
  Transmission Date: 20201103
  Serious: No
  Sender: FDA-Public Use
  Company Number: US-SA-2020SA236826

PATIENT

DRUGS (8)
  1. CALAMINE [Concomitant]
     Active Substance: CALAMINE\FERRIC OXIDE RED\ZINC OXIDE
     Dosage: UNK (8%?8% LOTION)
  2. BIOTIN [Concomitant]
     Active Substance: BIOTIN
  3. TRIAMCINOLONE ACETONIDE. [Concomitant]
     Active Substance: TRIAMCINOLONE ACETONIDE
  4. COCONUT OIL [Concomitant]
     Active Substance: COCONUT OIL
  5. DUPIXENT [Suspect]
     Active Substance: DUPILUMAB
     Dosage: 300 MG, Q3W (ROUTE: UNDER THE SKIN)
  6. EUCRISA [Concomitant]
     Active Substance: CRISABOROLE
  7. DUPIXENT [Suspect]
     Active Substance: DUPILUMAB
     Indication: DERMATITIS ATOPIC
     Dosage: 300 MG, QOW (ROUTE: UNDER THE SKIN)
     Dates: start: 201802
  8. AMITRIPTYLINE HCL [Concomitant]
     Active Substance: AMITRIPTYLINE

REACTIONS (1)
  - Off label use [Unknown]
